FAERS Safety Report 15278689 (Version 1)
Quarter: 2018Q3

REPORT INFORMATION
  Report Type: Spontaneous
  Country: US (occurrence: US)
  Receive Date: 20180815
  Receipt Date: 20180815
  Transmission Date: 20181010
  Serious: No
  Sender: FDA-Public Use
  Company Number: US-ASTRAZENECA-2018SF00660

PATIENT
  Sex: Male

DRUGS (1)
  1. SYMBICORT [Suspect]
     Active Substance: BUDESONIDE\FORMOTEROL FUMARATE DIHYDRATE
     Dosage: 80/4.5MCG, 2 PUFFS TWO TIMES A DAY
     Route: 055

REACTIONS (4)
  - Intentional device misuse [Unknown]
  - Extra dose administered [Unknown]
  - Device failure [Unknown]
  - Oedema [Unknown]

NARRATIVE: CASE EVENT DATE: 20180802
